FAERS Safety Report 5584585-8 (Version None)
Quarter: 2008Q1

REPORT INFORMATION
  Report Type: 
  Country: None (occurrence: None)
  Receive Date: 20080108
  Receipt Date: 20071119
  Transmission Date: 20080703
  Serious: Yes (Hospitalization)
  Sender: FDA-Public Use
  Company Number: FR-RANBAXY-2007US-11590

PATIENT

DRUGS (8)
  1. ISOPTIN SR [Suspect]
     Indication: DRUG USE FOR UNKNOWN INDICATION
     Dosage: 120 UNK, UNK
     Dates: end: 20070831
  2. NICORANDIL [Suspect]
     Indication: CHRONIC OBSTRUCTIVE PULMONARY DISEASE
     Dosage: UNK
     Dates: end: 20070831
  3. FUROSEMIDE RPG 20 MG COMPRIME SECABLE [Suspect]
     Indication: DRUG USE FOR UNKNOWN INDICATION
     Dosage: UNK
     Dates: end: 20070831
  4. TRINITRINE [Suspect]
     Indication: DRUG USE FOR UNKNOWN INDICATION
     Dosage: UNK
     Dates: end: 20070831
  5. AMIODARONE RPG 200 MG COMPRIME SECABLE [Suspect]
     Indication: DRUG USE FOR UNKNOWN INDICATION
     Dosage: UNK
     Dates: end: 20070901
  6. SALMETEROL/FLUTICASONE [Concomitant]
     Indication: DRUG USE FOR UNKNOWN INDICATION
  7. CARBOCYSTEIN [Concomitant]
     Indication: DRUG USE FOR UNKNOWN INDICATION
  8. HEMIDIGOXINE [Concomitant]
     Indication: DRUG USE FOR UNKNOWN INDICATION

REACTIONS (7)
  - DEHYDRATION [None]
  - HYPERTHYROIDISM [None]
  - HYPONATRAEMIA [None]
  - HYPOTENSION [None]
  - LOSS OF CONSCIOUSNESS [None]
  - MALAISE [None]
  - RENAL FAILURE [None]
